FAERS Safety Report 4825091-5 (Version None)
Quarter: 2005Q4

REPORT INFORMATION
  Report Type: 
  Country: None (occurrence: None)
  Receive Date: 20051108
  Receipt Date: 20051024
  Transmission Date: 20060501
  Serious: Yes (Hospitalization)
  Sender: FDA-Public Use
  Company Number: 2005-01562

PATIENT
  Age: 69 Year
  Sex: Female

DRUGS (6)
  1. VELCADE [Suspect]
     Indication: MULTIPLE MYELOMA
     Dosage: SEE IMAGE
     Route: 042
     Dates: start: 20050124, end: 20050203
  2. VELCADE [Suspect]
     Indication: MULTIPLE MYELOMA
     Dosage: SEE IMAGE
     Route: 042
     Dates: start: 20050425, end: 20050428
  3. L-THYROXINE (LEVOTHYROXINE SODIUM) [Concomitant]
  4. PANTOZOL (PANTOPRAXOEL SODIUM) [Concomitant]
  5. DIPYRONE TAB [Concomitant]
  6. DURAGESIC-100 [Concomitant]

REACTIONS (3)
  - DYSPNOEA [None]
  - GENERAL PHYSICAL HEALTH DETERIORATION [None]
  - OEDEMA PERIPHERAL [None]
